FAERS Safety Report 11700335 (Version 2)
Quarter: 2015Q4

REPORT INFORMATION
  Report Type: Spontaneous
  Country: JP (occurrence: JP)
  Receive Date: 20151105
  Receipt Date: 20151116
  Transmission Date: 20160304
  Serious: Yes (Hospitalization)
  Sender: FDA-Public Use
  Company Number: JP-JNJFOC-20151103896

PATIENT
  Age: 68 Year
  Sex: Male
  Weight: 84 kg

DRUGS (15)
  1. TENELIA [Concomitant]
     Active Substance: CITALOPRAM HYDROBROMIDE
     Indication: DIABETES MELLITUS
     Route: 048
     Dates: start: 20151027
  2. APIDRA [Concomitant]
     Active Substance: INSULIN GLULISINE
     Dosage: 10 DOSAGE FORMS
     Route: 058
     Dates: end: 20151005
  3. CANAGLU [Suspect]
     Active Substance: CANAGLIFLOZIN
     Indication: DIABETES MELLITUS
     Route: 048
     Dates: start: 20151006, end: 20151021
  4. MICAMLO [Concomitant]
     Active Substance: AMLODIPINE BESYLATE\TELMISARTAN
     Indication: HYPERTENSION
     Dosage: DOSE:  1 DOSAGE
     Route: 048
     Dates: start: 20151006
  5. TRESIBA [Concomitant]
     Active Substance: INSULIN DEGLUDEC
     Dosage: DOSE: 16 DOSAGE FORMS
     Route: 058
     Dates: start: 20151006
  6. TENELIA [Concomitant]
     Active Substance: CITALOPRAM HYDROBROMIDE
     Indication: DIABETES MELLITUS
     Route: 048
     Dates: start: 20150903, end: 20151024
  7. PRITORPLUS [Concomitant]
     Active Substance: HYDROCHLOROTHIAZIDE\TELMISARTAN
     Dosage: DOSE:  1 DOSAGE FORM
     Route: 048
     Dates: end: 20151005
  8. APIDRA [Concomitant]
     Active Substance: INSULIN GLULISINE
     Dosage: DOSE: 8 DOSAGE FORM
     Route: 058
     Dates: start: 20151006
  9. TRESIBA [Concomitant]
     Active Substance: INSULIN DEGLUDEC
     Dosage: DOSE: 20 DOSAGE FORMS
     Route: 058
     Dates: end: 20151005
  10. METFORMIN [Concomitant]
     Active Substance: METFORMIN HYDROCHLORIDE
     Indication: DIABETES MELLITUS
     Route: 065
     Dates: end: 20151024
  11. ATELEC [Concomitant]
     Active Substance: CILNIDIPINE
     Route: 048
     Dates: end: 20151005
  12. ZYLORIC [Concomitant]
     Active Substance: ALLOPURINOL
     Indication: HYPERURICAEMIA
     Route: 048
  13. ALOSITOL [Suspect]
     Active Substance: ALLOPURINOL
     Indication: PRODUCT USED FOR UNKNOWN INDICATION
     Route: 048
  14. INSULIN [Concomitant]
     Active Substance: INSULIN NOS
     Indication: DIABETES MELLITUS
     Route: 065
  15. METGLUCO [Concomitant]
     Active Substance: METFORMIN HYDROCHLORIDE
     Indication: DIABETES MELLITUS
     Route: 048
     Dates: end: 20151023

REACTIONS (1)
  - Prostatitis [Recovering/Resolving]

NARRATIVE: CASE EVENT DATE: 20151021
